FAERS Safety Report 12178026 (Version 7)
Quarter: 2017Q3

REPORT INFORMATION
  Report Type: Spontaneous
  Country: FR (occurrence: FR)
  Receive Date: 20160314
  Receipt Date: 20170815
  Transmission Date: 20171127
  Serious: Yes (Hospitalization, Other)
  Sender: FDA-Public Use
  Company Number: FR-ABBVIE-16P-056-1550556-00

PATIENT
  Age: 72 Year
  Sex: Female
  Weight: 54 kg

DRUGS (15)
  1. VIEKIRAX [Suspect]
     Active Substance: OMBITASVIR\PARITAPREVIR\RITONAVIR
     Indication: HEPATITIS C
     Route: 048
     Dates: start: 20160114, end: 20160125
  2. HEMIGOXINE [Concomitant]
     Active Substance: DIGOXIN
     Indication: ARRHYTHMIA
     Route: 048
  3. FUROSEMIDE. [Concomitant]
     Active Substance: FUROSEMIDE
     Indication: PRODUCT USED FOR UNKNOWN INDICATION
     Dates: end: 20160107
  4. PREVISCAN [Suspect]
     Active Substance: FLUINDIONE
     Route: 048
     Dates: start: 20160125, end: 20160211
  5. SPASMINE [Concomitant]
     Indication: GASTROINTESTINAL MOTILITY DISORDER
  6. LASILIX [Concomitant]
     Active Substance: FUROSEMIDE
     Indication: HYPERTENSION
     Route: 048
  7. TRIATEC [Concomitant]
     Active Substance: RAMIPRIL
     Indication: PRODUCT USED FOR UNKNOWN INDICATION
     Route: 048
  8. RAMIPRIL. [Concomitant]
     Active Substance: RAMIPRIL
     Indication: PRODUCT USED FOR UNKNOWN INDICATION
     Dates: end: 20160107
  9. PREVISCAN [Suspect]
     Active Substance: FLUINDIONE
     Indication: MITRAL VALVE REPLACEMENT
     Route: 048
  10. INEXIUM [Concomitant]
     Active Substance: ESOMEPRAZOLE
     Indication: GASTROOESOPHAGEAL REFLUX DISEASE
     Route: 048
  11. DIGOXIN. [Concomitant]
     Active Substance: DIGOXIN
     Indication: PRODUCT USED FOR UNKNOWN INDICATION
     Dates: end: 20160107
  12. EXVIERA [Suspect]
     Active Substance: DASABUVIR
     Indication: HEPATITIS C
     Route: 048
     Dates: start: 20160114, end: 20160125
  13. PREVISCAN [Suspect]
     Active Substance: FLUINDIONE
     Dosage: ALTERNATE 20 AND 25MG EVERY OTHER DAY
     Route: 048
     Dates: start: 20160211, end: 20160303
  14. PREVISCAN [Suspect]
     Active Substance: FLUINDIONE
     Dosage: 3/4 TABLET
     Route: 048
     Dates: start: 20160304
  15. PHENOBARBITAL. [Concomitant]
     Active Substance: PHENOBARBITAL
     Indication: PRODUCT USED FOR UNKNOWN INDICATION
     Dates: end: 20160107

REACTIONS (4)
  - Coagulation time shortened [Recovered/Resolved]
  - Overdose [Unknown]
  - Anuria [Recovered/Resolved]
  - Cystitis [Recovered/Resolved]

NARRATIVE: CASE EVENT DATE: 20160118
